FAERS Safety Report 13346262 (Version 1)
Quarter: 2017Q1

REPORT INFORMATION
  Report Type: Spontaneous
  Country: US (occurrence: US)
  Receive Date: 20170317
  Receipt Date: 20170317
  Transmission Date: 20170428
  Serious: Yes (Hospitalization, Other)
  Sender: FDA-Public Use
  Company Number: US-GLAXOSMITHKLINE-US2017GSK036991

PATIENT
  Sex: Male
  Weight: 72 kg

DRUGS (5)
  1. VFEND [Suspect]
     Active Substance: VORICONAZOLE
     Indication: PRODUCT USED FOR UNKNOWN INDICATION
     Dosage: UNK
     Dates: start: 201612
  2. FLUCONAZOLE. [Suspect]
     Active Substance: FLUCONAZOLE
     Indication: PRODUCT USED FOR UNKNOWN INDICATION
     Dosage: 200 MG, BID
  3. ACICLOVIR [Suspect]
     Active Substance: ACYCLOVIR
     Indication: PRODUCT USED FOR UNKNOWN INDICATION
     Dosage: 800 MG, QD
  4. METOPROLOL. [Suspect]
     Active Substance: METOPROLOL
     Indication: PRODUCT USED FOR UNKNOWN INDICATION
     Dosage: 25 MG, BID
     Dates: start: 201612
  5. RIBAVIRIN. [Suspect]
     Active Substance: RIBAVIRIN
     Indication: PRODUCT USED FOR UNKNOWN INDICATION
     Dosage: UNK
     Dates: start: 201612

REACTIONS (11)
  - Penis injury [Recovering/Resolving]
  - Lip injury [Recovering/Resolving]
  - Drug interaction [Unknown]
  - Skin burning sensation [Recovering/Resolving]
  - Tongue discomfort [Recovering/Resolving]
  - Penile burning sensation [Recovering/Resolving]
  - Tongue injury [Recovering/Resolving]
  - Skin necrosis [Recovering/Resolving]
  - Laceration [Recovering/Resolving]
  - Burning sensation [Recovering/Resolving]
  - Oral discomfort [Recovering/Resolving]
